FAERS Safety Report 25509208 (Version 1)
Quarter: 2025Q3

REPORT INFORMATION
  Report Type: Spontaneous
  Country: US (occurrence: None)
  Receive Date: 20250702
  Receipt Date: 20250702
  Transmission Date: 20251021
  Serious: Yes (Death)
  Sender: FDA-CTU
  Company Number: None

PATIENT
  Age: 78 Year
  Sex: Female

DRUGS (18)
  1. AMBRISENTAN [Suspect]
     Active Substance: AMBRISENTAN
     Indication: Pulmonary arterial hypertension
     Dosage: FREQUENCY : DAILY;?
     Route: 048
     Dates: start: 20220509, end: 20250516
  2. SILDENAFIL [Suspect]
     Active Substance: SILDENAFIL
  3. SILDENARIL [Concomitant]
  4. ALVESCO HFA [Concomitant]
  5. FUROSEMIDE [Concomitant]
     Active Substance: FUROSEMIDE
  6. PANTOPRAZOLE [Concomitant]
     Active Substance: PANTOPRAZOLE
  7. GLUCOSAMINE/CHONDROITIN [Concomitant]
  8. ALBUTEROL SULFATE [Concomitant]
     Active Substance: ALBUTEROL SULFATE
  9. ATORVASTATIN [Concomitant]
     Active Substance: ATORVASTATIN
  10. SPIRIVA RESPIMAT [Concomitant]
     Active Substance: TIOTROPIUM BROMIDE
  11. PROGESTERONE [Concomitant]
     Active Substance: PROGESTERONE
  12. VITAMIN D3 [Concomitant]
     Active Substance: CHOLECALCIFEROL
  13. VITAMIN B12 [Concomitant]
     Active Substance: CYANOCOBALAMIN
  14. ASCORBIC ACID\IRON [Concomitant]
     Active Substance: ASCORBIC ACID\IRON
  15. MAGNESIUM [Concomitant]
     Active Substance: MAGNESIUM
  16. OXIDE [Concomitant]
  17. COENZYME Q10 [Concomitant]
     Active Substance: DIETARY SUPPLEMENT\UBIDECARENONE
  18. VITAMINS [Concomitant]
     Active Substance: VITAMINS

REACTIONS (6)
  - Pulmonary embolism [None]
  - Pulmonary hypertension [None]
  - Right ventricular failure [None]
  - Acute respiratory failure [None]
  - Respiratory failure [None]
  - Renal impairment [None]

NARRATIVE: CASE EVENT DATE: 20250426
